FAERS Safety Report 22825539 (Version 3)
Quarter: 2023Q4

REPORT INFORMATION
  Report Type: Report from Study
  Country: US (occurrence: US)
  Receive Date: 20230816
  Receipt Date: 20231222
  Transmission Date: 20240110
  Serious: Yes (Death)
  Sender: FDA-Public Use
  Company Number: US-ABBVIE-5367732

PATIENT
  Age: 76 Year
  Sex: Male

DRUGS (1)
  1. CREON [Suspect]
     Active Substance: PANCRELIPASE AMYLASE\PANCRELIPASE LIPASE\PANCRELIPASE PROTEASE
     Indication: Product used for unknown indication
     Dosage: DOSAGE: 36000 U FORM STRENGTH: 36000 UNIT,?FREQUENCY TEXT: 2 CAPS WITH EACH MEAL 1 CAP WITH SNACK...
     Route: 048
     Dates: end: 20230718

REACTIONS (1)
  - Death [Fatal]

NARRATIVE: CASE EVENT DATE: 20230808
